FAERS Safety Report 25269331 (Version 1)
Quarter: 2025Q2

REPORT INFORMATION
  Report Type: Spontaneous
  Country: US (occurrence: US)
  Receive Date: 20250505
  Receipt Date: 20250505
  Transmission Date: 20250716
  Serious: No
  Sender: INSUD PHARMA
  Company Number: US-INSUD PHARMA-2504US03090

PATIENT

DRUGS (1)
  1. SLYND [Suspect]
     Active Substance: DROSPIRENONE
     Indication: Oral contraception
     Route: 048
     Dates: start: 202504

REACTIONS (3)
  - Menstruation irregular [Not Recovered/Not Resolved]
  - Acne [Unknown]
  - Weight increased [Unknown]

NARRATIVE: CASE EVENT DATE: 20250401
